FAERS Safety Report 5095045-5 (Version None)
Quarter: 2006Q3

REPORT INFORMATION
  Report Type: 
  Country: None (occurrence: None)
  Receive Date: 20060830
  Receipt Date: 20060818
  Transmission Date: 20061208
  Serious: Yes (Hospitalization)
  Sender: FDA-Public Use
  Company Number: 163-C5013-06080336

PATIENT
  Age: 68 Year
  Sex: Male

DRUGS (10)
  1. CC-5013 (LENALIDOMIDE) (25 MILLIGRAM, CAPSULES) [Suspect]
     Indication: MULTIPLE MYELOMA
     Dosage: FOR 21 DAYS, ORAL
     Route: 048
     Dates: start: 20060422, end: 20060504
  2. DECADRON [Suspect]
     Indication: MULTIPLE MYELOMA
     Dosage: 20 MG, DAILY, ORAL
     Route: 048
     Dates: start: 20060422, end: 20060504
  3. OXYCONTIN [Concomitant]
  4. OXYCODONE (OXYCODONE) [Concomitant]
  5. FENTANYL (FENTANYL) (POULTICE OR PATCH) [Concomitant]
  6. LIPITOR [Concomitant]
  7. METOPROLOL (METOPROLOL) [Concomitant]
  8. FLUCONAZOLE [Concomitant]
  9. PRAVACHOL [Concomitant]
  10. NYSTATIN [Concomitant]

REACTIONS (5)
  - BLOOD CREATINE PHOSPHOKINASE INCREASED [None]
  - BLOOD CREATINE PHOSPHOKINASE MB INCREASED [None]
  - BLOOD CREATININE INCREASED [None]
  - HYPERGLYCAEMIC HYPEROSMOLAR NONKETOTIC SYNDROME [None]
  - WHITE BLOOD CELL COUNT INCREASED [None]
